FAERS Safety Report 7383339-X (Version None)
Quarter: 2011Q1

REPORT INFORMATION
  Report Type: 
  Country: None (occurrence: None)
  Receive Date: 20110330
  Receipt Date: 20110316
  Transmission Date: 20110831
  Serious: Yes (Hospitalization)
  Sender: FDA-Public Use
  Company Number: FR-CELGENEUS-056-C5013-11031973

PATIENT
  Sex: Female
  Weight: 72 kg

DRUGS (11)
  1. EFFERALGAN [Concomitant]
     Indication: BONE PAIN
     Route: 048
     Dates: start: 20080912
  2. CALCIUM [Concomitant]
     Dosage: 500 MILLIGRAM
     Route: 048
     Dates: start: 20090213
  3. LENALIDOMIDE [Suspect]
     Indication: MULTIPLE MYELOMA
     Dosage: 10 MILLIGRAM
     Route: 048
     Dates: start: 20081025
  4. LENALIDOMIDE [Suspect]
     Route: 048
     Dates: end: 20110117
  5. DEXAMETHASONE [Suspect]
     Indication: MULTIPLE MYELOMA
     Dosage: 20 MILLIGRAM
     Route: 065
     Dates: start: 20081025
  6. TAHOR [Concomitant]
     Dosage: 10 MILLIGRAM
     Route: 048
     Dates: start: 20070801
  7. PREVISCAN [Concomitant]
     Indication: PROPHYLAXIS
     Dosage: 5 TO 10 MG
     Route: 048
     Dates: start: 20090119
  8. ATENOLOL [Concomitant]
     Indication: ATRIAL FIBRILLATION
     Dosage: 50 MILLIGRAM
     Route: 048
     Dates: start: 20090320
  9. LEXOMIL [Concomitant]
     Indication: INSOMNIA
     Dosage: 3 MILLIGRAM
     Route: 048
     Dates: start: 20090110
  10. DEXAMETHASONE [Suspect]
     Dosage: 20 MILLIGRAM
     Route: 065
     Dates: end: 20110111
  11. LASIX [Concomitant]
     Dosage: 40 MILLIGRAM
     Route: 048
     Dates: start: 20090904

REACTIONS (1)
  - SKIN ULCER [None]
